FAERS Safety Report 14671253 (Version 1)
Quarter: 2018Q1

REPORT INFORMATION
  Report Type: Spontaneous
  Country: US (occurrence: US)
  Receive Date: 20180322
  Receipt Date: 20180322
  Transmission Date: 20180509
  Serious: Yes (Other)
  Sender: FDA-Public Use
  Company Number: US-SA-2018SA021657

PATIENT
  Age: 64 Year
  Sex: Female
  Weight: 73.94 kg

DRUGS (15)
  1. LOSARTAN. [Concomitant]
     Active Substance: LOSARTAN
     Route: 065
  2. VALSARTAN. [Concomitant]
     Active Substance: VALSARTAN
     Route: 065
  3. PROLIA [Concomitant]
     Active Substance: DENOSUMAB
     Indication: OSTEOPOROSIS
     Route: 065
  4. IBUPROFEN. [Concomitant]
     Active Substance: IBUPROFEN
     Indication: BACK PAIN
     Route: 065
  5. AUBAGIO [Suspect]
     Active Substance: TERIFLUNOMIDE
     Indication: MULTIPLE SCLEROSIS
     Route: 048
     Dates: start: 20170110
  6. ATENOLOL. [Concomitant]
     Active Substance: ATENOLOL
     Route: 065
  7. DIAZEPAM. [Concomitant]
     Active Substance: DIAZEPAM
     Route: 048
  8. METHYLPREDNISOLONE. [Concomitant]
     Active Substance: METHYLPREDNISOLONE
     Route: 065
  9. VITAMIN B12 [Concomitant]
     Active Substance: CYANOCOBALAMIN
     Indication: ANAEMIA
     Route: 065
  10. MONTELUKAST [Concomitant]
     Active Substance: MONTELUKAST SODIUM
     Route: 065
  11. BACLOFEN. [Concomitant]
     Active Substance: BACLOFEN
     Route: 048
  12. BENZONATATE. [Concomitant]
     Active Substance: BENZONATATE
     Route: 065
  13. AUBAGIO [Suspect]
     Active Substance: TERIFLUNOMIDE
     Indication: MULTIPLE SCLEROSIS
     Route: 048
     Dates: start: 20171211
  14. BACLOFEN. [Concomitant]
     Active Substance: BACLOFEN
     Route: 065
  15. PROCRIT [Concomitant]
     Active Substance: ERYTHROPOIETIN
     Indication: ANAEMIA
     Route: 065

REACTIONS (32)
  - Condition aggravated [Not Recovered/Not Resolved]
  - Amnesia [Unknown]
  - Muscle spasms [Unknown]
  - Balance disorder [Unknown]
  - Fall [Unknown]
  - Ligament sprain [Unknown]
  - Dysphagia [Unknown]
  - Choking sensation [Unknown]
  - Aphasia [Unknown]
  - Cough [Unknown]
  - Sleep disorder [Unknown]
  - Contusion [Unknown]
  - Dysphonia [Unknown]
  - Appetite disorder [Unknown]
  - Hypertension [Unknown]
  - Neck pain [Unknown]
  - Hypoaesthesia [Unknown]
  - Hyperaesthesia [Unknown]
  - Temperature intolerance [Unknown]
  - Back pain [Unknown]
  - Fatigue [Unknown]
  - Blindness [Unknown]
  - Skin burning sensation [Unknown]
  - Upper-airway cough syndrome [Unknown]
  - Haemorrhage [Unknown]
  - Muscular weakness [Not Recovered/Not Resolved]
  - Condition aggravated [Unknown]
  - Constipation [Unknown]
  - Somnolence [Unknown]
  - Depression [Unknown]
  - Dyspnoea [Unknown]
  - Palpitations [Unknown]

NARRATIVE: CASE EVENT DATE: 201709
